FAERS Safety Report 7764914-7 (Version None)
Quarter: 2011Q3

REPORT INFORMATION
  Report Type: 
  Country: None (occurrence: None)
  Receive Date: 20110921
  Receipt Date: 20110907
  Transmission Date: 20111222
  Serious: Yes (Other)
  Sender: FDA-Public Use
  Company Number: ES-JNJFOC-20110905259

PATIENT
  Age: 46 Year
  Sex: Male

DRUGS (2)
  1. CETIRIZINE HCL [Suspect]
     Indication: PRODUCT USED FOR UNKNOWN INDICATION
     Dosage: DAILY DOSE TEXT: 10MG 2 MONTHS (APPROX. TOTAL DOSE 500MG)
     Route: 065
  2. CETIRIZINE HCL [Suspect]
     Route: 065

REACTIONS (1)
  - HEPATITIS [None]
